FAERS Safety Report 16939991 (Version 2)
Quarter: 2020Q1

REPORT INFORMATION
  Report Type: Report from Study
  Country: US (occurrence: US)
  Receive Date: 20191021
  Receipt Date: 20200103
  Transmission Date: 20200409
  Serious: Yes (Hospitalization, Other)
  Sender: FDA-Public Use
  Company Number: US-ROCHE-2440687

PATIENT
  Age: 57 Year
  Sex: Female

DRUGS (1)
  1. OCREVUS [Suspect]
     Active Substance: OCRELIZUMAB
     Indication: PRIMARY PROGRESSIVE MULTIPLE SCLEROSIS
     Dosage: DATE OF TREATMENT: 04-APR-2019, 04-OCT-2018, 03-OCT-2017, 19-SEP-2017, 04-MAR-2018
     Route: 042
     Dates: start: 20170919

REACTIONS (6)
  - Pancreatitis [Unknown]
  - Cholelithiasis [Recovered/Resolved]
  - Pancreatic pseudocyst [Recovered/Resolved]
  - Pneumonia [Unknown]
  - Sepsis [Unknown]
  - Pyrexia [Recovered/Resolved]

NARRATIVE: CASE EVENT DATE: 20191003
